FAERS Safety Report 8933341 (Version 1)
Quarter: 2012Q4

REPORT INFORMATION
  Report Type: 
  Country: CA (occurrence: CA)
  Receive Date: 20121129
  Receipt Date: 20121129
  Transmission Date: 20130627
  Serious: Yes (Other)
  Sender: FDA-Public Use
  Company Number: CA-AMGEN-KDL418394

PATIENT
  Age: 52 Year
  Sex: Male

DRUGS (1)
  1. VECTIBIX [Suspect]
     Indication: COLORECTAL CANCER
     Dosage: UNK UNK, q2wk
     Dates: start: 20100127

REACTIONS (4)
  - Bone fissure [Unknown]
  - Skin necrosis [Unknown]
  - Skin lesion [Unknown]
  - Dermatitis acneiform [Unknown]
